FAERS Safety Report 7575512-2 (Version None)
Quarter: 2011Q2

REPORT INFORMATION
  Report Type: 
  Country: None (occurrence: None)
  Receive Date: 20110627
  Receipt Date: 20110615
  Transmission Date: 20111010
  Serious: Yes (Hospitalization)
  Sender: FDA-Public Use
  Company Number: US-ELI_LILLY_AND_COMPANY-US201106005316

PATIENT
  Sex: Male

DRUGS (4)
  1. HUMALOG [Suspect]
     Indication: DIABETES MELLITUS
     Dosage: 90 U, OTHER
     Dates: start: 19930101
  2. HUMALOG [Suspect]
     Dosage: 90 U, OTHER
     Dates: start: 19930101
  3. HUMALOG [Suspect]
     Dosage: 20 U, OTHER
     Dates: start: 19930101
  4. PAIN RELIEF [Concomitant]
     Indication: PAIN
     Dosage: UNK

REACTIONS (4)
  - EXPLORATORY OPERATION [None]
  - MEDICAL DEVICE IMPLANTATION [None]
  - ACCIDENT [None]
  - CARDIAC FAILURE CONGESTIVE [None]
